FAERS Safety Report 6054020-4 (Version None)
Quarter: 2009Q1

REPORT INFORMATION
  Report Type: 
  Country: None (occurrence: None)
  Receive Date: 20090127
  Receipt Date: 20090123
  Transmission Date: 20090719
  Serious: Yes (Death, Life-Threatening)
  Sender: FDA-Public Use
  Company Number: CA-GENENTECH-270664

PATIENT
  Sex: Female

DRUGS (2)
  1. EFALIZUMAB [Suspect]
     Indication: PSORIASIS
     Dosage: 1 MG/KG, 1/WEEK
     Route: 058
     Dates: start: 20061220, end: 20080812
  2. LEVOTHYROXINE SODIUM [Concomitant]
     Indication: HYPOTHYROIDISM
     Dosage: UNK MG, QD
     Route: 048
     Dates: start: 20061229

REACTIONS (3)
  - ABDOMINAL PAIN [None]
  - ADENOCARCINOMA [None]
  - HEPATIC NEOPLASM MALIGNANT [None]
